FAERS Safety Report 8246754-8 (Version None)
Quarter: 2012Q1

REPORT INFORMATION
  Report Type: 
  Country: None (occurrence: None)
  Receive Date: 20120330
  Receipt Date: 20120322
  Transmission Date: 20120608
  Serious: Yes (Other)
  Sender: FDA-Public Use
  Company Number: US-PFIZER INC-2012074806

PATIENT
  Sex: Female
  Weight: 81.633 kg

DRUGS (3)
  1. PREMARIN [Suspect]
     Dosage: UNK
     Dates: start: 20120123
  2. PRILOSEC [Concomitant]
     Indication: BARRETT'S OESOPHAGUS
     Dosage: DAILY
  3. PLAQUENIL [Concomitant]
     Indication: SJOGREN'S SYNDROME
     Dosage: UNK

REACTIONS (7)
  - ABDOMINAL PAIN [None]
  - TONGUE DISORDER [None]
  - ABDOMINAL DISTENSION [None]
  - DIARRHOEA [None]
  - NAUSEA [None]
  - HEPATIC ENZYME INCREASED [None]
  - PANCREATITIS [None]
